FAERS Safety Report 4763307-4 (Version None)
Quarter: 2005Q3

REPORT INFORMATION
  Report Type: 
  Country: None (occurrence: None)
  Receive Date: 20050902
  Receipt Date: 20050819
  Transmission Date: 20060218
  Serious: Yes (Hospitalization)
  Sender: FDA-Public Use
  Company Number: 203608

PATIENT
  Age: 42 Year
  Sex: Female
  Weight: 79.3795 kg

DRUGS (9)
  1. AVONEX [Suspect]
     Indication: MULTIPLE SCLEROSIS
     Dosage: 30 UG;QW;IM
     Route: 030
     Dates: start: 19990101, end: 20030801
  2. AVONEX [Suspect]
     Indication: MULTIPLE SCLEROSIS
     Dosage: 30 UG;QW;IM
     Route: 030
     Dates: start: 20030801
  3. EFFEXOR [Concomitant]
  4. ABILIFY [Concomitant]
  5. ALLEGRA [Concomitant]
  6. SINGULAIR [Concomitant]
  7. COUMADIN [Concomitant]
  8. OXYCONTIN [Concomitant]
  9. NEXIUM [Concomitant]

REACTIONS (4)
  - APPENDICITIS [None]
  - DRUG LEVEL INCREASED [None]
  - HAEMATURIA [None]
  - INTESTINAL HAEMORRHAGE [None]
